FAERS Safety Report 17022229 (Version 1)
Quarter: 2019Q4

REPORT INFORMATION
  Report Type: Spontaneous
  Country: US (occurrence: US)
  Receive Date: 20191112
  Receipt Date: 20191112
  Transmission Date: 20200122
  Serious: Yes (Other)
  Sender: FDA-Public Use
  Company Number: US-AMERICAN REGENT INC-2019002434

PATIENT
  Age: 32 Year
  Sex: Male

DRUGS (2)
  1. HYPERTONIC SALINE SOLUTION [Suspect]
     Active Substance: SODIUM CHLORIDE
     Indication: INTRACRANIAL PRESSURE INCREASED
     Route: 065
  2. MANNITOL INJECTION, USP (4050-25) [Suspect]
     Active Substance: MANNITOL
     Indication: INTRACRANIAL PRESSURE INCREASED
     Route: 065

REACTIONS (5)
  - Hyperkalaemia [Recovered/Resolved]
  - Rhabdomyolysis [Recovered/Resolved]
  - Hypokalaemia [Recovered/Resolved]
  - Hypophosphataemia [Recovered/Resolved]
  - Acute kidney injury [Recovered/Resolved]
